FAERS Safety Report 5320811-8 (Version None)
Quarter: 2007Q2

REPORT INFORMATION
  Report Type: 
  Country: None (occurrence: None)
  Receive Date: 20070502
  Receipt Date: 20070423
  Transmission Date: 20071010
  Serious: Yes (Other)
  Sender: FDA-Public Use
  Company Number: 2007SP007794

PATIENT
  Age: 34 Year
  Sex: Female

DRUGS (3)
  1. PEG-INTRON [Suspect]
     Indication: HEPATITIS C
     Dosage: SC
     Route: 058
     Dates: start: 20070216
  2. RIBAVIRIN [Suspect]
     Indication: HEPATITIS C
     Dosage: PO
     Route: 048
     Dates: start: 20070216
  3. LEXAPRO (CON.) [Concomitant]

REACTIONS (16)
  - ANAEMIA [None]
  - ANTIDEPRESSANT DRUG LEVEL INCREASED [None]
  - BACK PAIN [None]
  - CHEST PAIN [None]
  - CONVULSION [None]
  - DEPRESSION [None]
  - DISEASE RECURRENCE [None]
  - DRY EYE [None]
  - DYSPNOEA [None]
  - FACIAL PALSY [None]
  - FATIGUE [None]
  - HEMIPLEGIA [None]
  - LYMPHOCYTE COUNT INCREASED [None]
  - MYALGIA [None]
  - NEUROPATHY [None]
  - TONGUE PARALYSIS [None]
